FAERS Safety Report 6646671-0 (Version None)
Quarter: 2010Q1

REPORT INFORMATION
  Report Type: 
  Country: None (occurrence: None)
  Receive Date: 20100323
  Receipt Date: 20100312
  Transmission Date: 20100710
  Serious: Yes (Hospitalization)
  Sender: FDA-Public Use
  Company Number: US-JNJFOC-20100304297

PATIENT
  Sex: Female
  Weight: 75.3 kg

DRUGS (4)
  1. INFLIXIMAB [Suspect]
     Indication: PSORIASIS
     Route: 042
  2. INFLIXIMAB [Suspect]
     Route: 042
  3. MACROBID [Suspect]
     Indication: DRUG USE FOR UNKNOWN INDICATION
  4. SYSTEMIC CORTICOSTEROIDS [Concomitant]

REACTIONS (4)
  - FATIGUE [None]
  - NAUSEA [None]
  - PYREXIA [None]
  - VOMITING [None]
